FAERS Safety Report 5536965-4 (Version None)
Quarter: 2007Q4

REPORT INFORMATION
  Report Type: 
  Country: None (occurrence: None)
  Receive Date: 20071207
  Receipt Date: 20071123
  Transmission Date: 20080405
  Serious: Yes (Other)
  Sender: FDA-Public Use
  Company Number: IT-BAYER-200717076GPV

PATIENT
  Age: 78 Year
  Sex: Female

DRUGS (6)
  1. ULTRAVIST 370 [Suspect]
     Indication: COMPUTERISED TOMOGRAM
     Route: 042
     Dates: start: 20071015, end: 20071015
  2. TIMOLOLO [Concomitant]
  3. PROCAPTAN [Concomitant]
  4. EUTIROX [Concomitant]
  5. CIPROXIN [Concomitant]
  6. VAGILEN [Concomitant]
     Indication: CLOSTRIDIUM DIFFICILE COLITIS

REACTIONS (4)
  - AGITATION [None]
  - AMNESIA [None]
  - BLOOD THYROID STIMULATING HORMONE INCREASED [None]
  - HYPERTENSIVE CRISIS [None]
